FAERS Safety Report 7062122-9 (Version None)
Quarter: 2010Q4

REPORT INFORMATION
  Report Type: 
  Country: None (occurrence: None)
  Receive Date: 20101026
  Receipt Date: 20101015
  Transmission Date: 20110411
  Serious: Yes (Hospitalization)
  Sender: FDA-Public Use
  Company Number: PHHO2010JP14718

PATIENT
  Sex: Male
  Weight: 56 kg

DRUGS (12)
  1. NEORAL [Suspect]
     Indication: RENAL TRANSPLANT
     Dosage: 150MG
     Route: 048
     Dates: start: 20090910
  2. MYCOPHENOLATE MOFETIL [Suspect]
     Indication: RENAL TRANSPLANT
     Dosage: UNK
     Route: 048
     Dates: start: 20080820, end: 20100818
  3. MYCOPHENOLATE MOFETIL [Suspect]
     Dosage: UNK
     Route: 048
     Dates: start: 20100818
  4. PREDNISOLONE [Suspect]
  5. SIMULECT [Concomitant]
  6. SANDIMMUNE [Concomitant]
  7. ISODINE [Concomitant]
  8. HALIZON [Concomitant]
  9. PROTECADIN [Concomitant]
  10. BAKTAR [Concomitant]
  11. BONALON [Concomitant]
  12. LIPITOR [Concomitant]

REACTIONS (4)
  - COLON CANCER [None]
  - COLONIC POLYP [None]
  - HAEMATOCHEZIA [None]
  - POLYPECTOMY [None]
